FAERS Safety Report 14546018 (Version 2)
Quarter: 2021Q3

REPORT INFORMATION
  Report Type: Spontaneous
  Country: US (occurrence: US)
  Receive Date: 20180219
  Receipt Date: 20210908
  Transmission Date: 20211014
  Serious: Yes (Disabling, Other)
  Sender: FDA-Public Use
  Company Number: US-TEVA-2018-US-860118

PATIENT
  Age: 64 Year
  Sex: Female
  Weight: 61.2 kg

DRUGS (15)
  1. DOCETAXEL SAGENT [Suspect]
     Active Substance: DOCETAXEL
     Indication: HER2 POSITIVE BREAST CANCER
     Dosage: 118 MG IN 250 ML NS OVER 60 MIN EVERY 3 WEEKS 2 CYCLES
     Route: 042
     Dates: start: 20140930, end: 20141021
  2. LANTUS [Concomitant]
     Active Substance: INSULIN GLARGINE
     Dosage: INJECT 20 UNITS UNDER THE SKIN
     Route: 058
     Dates: start: 20080101
  3. HERCEPTIN [Suspect]
     Active Substance: TRASTUZUMAB
     Dosage: 346 MG IV IN 250 ML NS OVER 90 MIN 16 CYCLES
     Route: 042
     Dates: start: 20141021, end: 20150922
  4. MOBIC [Concomitant]
     Active Substance: MELOXICAM
     Route: 048
     Dates: start: 20080101
  5. HERCEPTIN [Suspect]
     Active Substance: TRASTUZUMAB
     Indication: HER2 POSITIVE BREAST CANCER
     Dosage: 461 MG IV IN 250 ML NS OVER 90 MIN CYCLE 1
     Route: 042
     Dates: start: 20140930, end: 20140930
  6. PERTUZUMAB. [Suspect]
     Active Substance: PERTUZUMAB
     Dosage: 420 MG IV IN 250 ML NS OVER 60 MINUTES CYCLE 2
     Route: 042
     Dates: start: 20141021, end: 20141021
  7. NEURONTIN [Concomitant]
     Active Substance: GABAPENTIN
     Dosage: 2 TAB 2 TIMES A DAY AND 3 TIMES AT NIGHT
     Route: 048
     Dates: start: 20080101
  8. DOCETAXEL SAGENT [Suspect]
     Active Substance: DOCETAXEL
     Dosage: 95 MG IV IN 250 ML NS OVER 1 HOUR 4 CYCLES
     Route: 042
     Dates: start: 20141111, end: 20150114
  9. CARBOPLATIN. [Suspect]
     Active Substance: CARBOPLATIN
     Dosage: 552 MG IV IN 250 ML OF NS OVER 30 MINUTES 4 CYCLES
     Route: 042
     Dates: start: 20141111, end: 20150114
  10. PERTUZUMAB. [Suspect]
     Active Substance: PERTUZUMAB
     Indication: HER2 POSITIVE BREAST CANCER
     Dosage: 840 MG IV IN 250ML NS OVER 60 MINUTES EVERY 3 WEEKS CYCLE 1
     Route: 042
     Dates: start: 20140930, end: 20140930
  11. INSULIN TRESIBA FLEXTOUCH [Concomitant]
     Dosage: 200 UNITS/ML (3 ML) INJECT 60 UNITS UNDER THE SKIN
     Route: 058
     Dates: start: 20080101
  12. ARICEPT [Concomitant]
     Active Substance: DONEPEZIL HYDROCHLORIDE
     Dosage: AT NIGHT
     Route: 048
     Dates: start: 20080101
  13. CARBOPLATIN. [Suspect]
     Active Substance: CARBOPLATIN
     Indication: HER2 POSITIVE BREAST CANCER
     Dosage: 613 MG IV IN 250ML NS OVER 30 MINUTES EVERY 3 WEEKS 2 CYCLES
     Route: 042
     Dates: start: 20140930, end: 20141021
  14. NEULASTA [Suspect]
     Active Substance: PEGFILGRASTIM
     Indication: HER2 POSITIVE BREAST CANCER
     Dosage: EVERY 3 WEEKS
     Route: 058
     Dates: start: 20141001, end: 20150115
  15. LIPITOR [Concomitant]
     Active Substance: ATORVASTATIN CALCIUM
     Dosage: WITH EVENING MEAL
     Route: 048
     Dates: end: 20080101

REACTIONS (17)
  - Gastrooesophageal reflux disease [Recovering/Resolving]
  - Depression [Recovering/Resolving]
  - Pyrexia [Recovering/Resolving]
  - Nausea [Recovering/Resolving]
  - Chest pain [Recovering/Resolving]
  - Madarosis [Not Recovered/Not Resolved]
  - Alopecia areata [Not Recovered/Not Resolved]
  - Diabetes mellitus inadequate control [Unknown]
  - Diarrhoea [Recovering/Resolving]
  - Vomiting [Recovered/Resolved]
  - Dehydration [Recovered/Resolved]
  - Onychalgia [Recovering/Resolving]
  - Cancer fatigue [Recovering/Resolving]
  - Dyspepsia [Recovering/Resolving]
  - Hair colour changes [Not Recovered/Not Resolved]
  - Pain [Not Recovered/Not Resolved]
  - Hair texture abnormal [Not Recovered/Not Resolved]

NARRATIVE: CASE EVENT DATE: 201410
